FAERS Safety Report 12537848 (Version 1)
Quarter: 2016Q3

REPORT INFORMATION
  Report Type: Spontaneous
  Country: US (occurrence: US)
  Receive Date: 20160707
  Receipt Date: 20160707
  Transmission Date: 20161109
  Serious: Yes (Other)
  Sender: FDA-Public Use
  Company Number: US-DSJP-DSU-2015-120106

PATIENT
  Age: 77 Year
  Sex: Female
  Weight: 143 kg

DRUGS (6)
  1. PLETAL [Concomitant]
     Active Substance: CILOSTAZOL
     Indication: PRODUCT USED FOR UNKNOWN INDICATION
     Dosage: 100 MG, BID
     Dates: start: 2005
  2. LIPITOR [Concomitant]
     Active Substance: ATORVASTATIN CALCIUM
     Indication: PRODUCT USED FOR UNKNOWN INDICATION
     Dosage: 20MG DAILY
     Dates: start: 2005
  3. OMEPRAZOLE. [Concomitant]
     Active Substance: OMEPRAZOLE
     Indication: PRODUCT USED FOR UNKNOWN INDICATION
     Dosage: 20 MG, UNK
  4. PLAVIX [Concomitant]
     Active Substance: CLOPIDOGREL BISULFATE
     Indication: PRODUCT USED FOR UNKNOWN INDICATION
     Dosage: 75 MG, UNK
  5. LOVAZA [Concomitant]
     Active Substance: OMEGA-3-ACID ETHYL ESTERS
     Indication: PRODUCT USED FOR UNKNOWN INDICATION
     Dosage: UNK
     Dates: start: 201001, end: 201303
  6. BENICAR HCT [Suspect]
     Active Substance: HYDROCHLOROTHIAZIDE\OLMESARTAN MEDOXOMIL
     Indication: HYPERTENSION
     Dosage: 20/12.5 MG
     Route: 048
     Dates: start: 201001, end: 201309

REACTIONS (7)
  - Dizziness [Unknown]
  - Malabsorption [Recovering/Resolving]
  - Diverticulum [Not Recovered/Not Resolved]
  - Weight decreased [Recovering/Resolving]
  - Emotional distress [Not Recovered/Not Resolved]
  - Colon adenoma [Unknown]
  - Colon injury [Unknown]

NARRATIVE: CASE EVENT DATE: 201303
